FAERS Safety Report 16794273 (Version 3)
Quarter: 2022Q2

REPORT INFORMATION
  Report Type: Spontaneous
  Country: US (occurrence: None)
  Receive Date: 20190911
  Receipt Date: 20220419
  Transmission Date: 20220721
  Serious: Yes (Hospitalization)
  Sender: FDA-Public Use
  Company Number: US-ROCHE-2295358

PATIENT
  Age: 45 Year
  Sex: Male
  Weight: 97.610 kg

DRUGS (1)
  1. ALECENSA [Suspect]
     Active Substance: ALECTINIB HYDROCHLORIDE
     Indication: Bronchial carcinoma
     Dosage: 4 CAPSULES TWICE DAILY
     Route: 048
     Dates: start: 20190306

REACTIONS (7)
  - Diverticulitis [Unknown]
  - Urticaria [Unknown]
  - Nausea [Unknown]
  - Fatigue [Unknown]
  - Dizziness [Recovering/Resolving]
  - Dizziness [Recovering/Resolving]
  - Contrast media allergy [Not Recovered/Not Resolved]

NARRATIVE: CASE EVENT DATE: 20220101
